FAERS Safety Report 7500904-7 (Version None)
Quarter: 2011Q2

REPORT INFORMATION
  Report Type: 
  Country: None (occurrence: None)
  Receive Date: 20110524
  Receipt Date: 20110511
  Transmission Date: 20111010
  Serious: Yes (Other)
  Sender: FDA-Public Use
  Company Number: CA-GENENTECH-309422

PATIENT
  Sex: Female
  Weight: 88 kg

DRUGS (3)
  1. XOLAIR [Suspect]
     Dosage: 300 MG, Q2W
     Route: 058
     Dates: start: 20091029
  2. XOLAIR [Suspect]
     Indication: ASTHMA
     Dosage: 300 MG, 2/WEEK
     Route: 058
     Dates: start: 20090211
  3. XOLAIR [Suspect]
     Dosage: UNK
     Dates: start: 20090617

REACTIONS (12)
  - PULMONARY CONGESTION [None]
  - RHINORRHOEA [None]
  - BRONCHIOLITIS [None]
  - BODY TEMPERATURE INCREASED [None]
  - NASOPHARYNGITIS [None]
  - FATIGUE [None]
  - DIZZINESS [None]
  - BURNS FIRST DEGREE [None]
  - PRODUCTIVE COUGH [None]
  - DYSPNOEA [None]
  - PNEUMONIA [None]
  - SUNBURN [None]
